FAERS Safety Report 9087157 (Version 1)
Quarter: 2013Q1

REPORT INFORMATION
  Report Type: Report from Study
  Country: US (occurrence: US)
  Receive Date: 20130201
  Receipt Date: 20130201
  Transmission Date: 20140127
  Serious: No
  Sender: FDA-Public Use
  Company Number: US-ABBOTT-12P-163-1025598-00

PATIENT
  Age: 65 Year
  Sex: Female

DRUGS (12)
  1. HUMIRA [Suspect]
     Indication: PSORIATIC ARTHROPATHY
  2. AZATHIOPRINE [Concomitant]
     Indication: PSORIATIC ARTHROPATHY
  3. MOBIC [Concomitant]
     Indication: PSORIATIC ARTHROPATHY
  4. NEURONTIN [Concomitant]
     Indication: PRODUCT USED FOR UNKNOWN INDICATION
  5. CYMBALTA [Concomitant]
     Indication: DEPRESSION
  6. CYMBALTA [Concomitant]
     Indication: PAIN
  7. PROZAC [Concomitant]
     Indication: DEPRESSION
  8. KLONOPIN [Concomitant]
     Indication: DEPRESSION
  9. KLONOPIN [Concomitant]
     Indication: ANXIETY
  10. COREG [Concomitant]
     Indication: CARDIOMYOPATHY
  11. ASPIRIN [Concomitant]
     Indication: PRODUCT USED FOR UNKNOWN INDICATION
  12. PRAVASTATIN [Concomitant]
     Indication: CORONARY ARTERY DISEASE

REACTIONS (2)
  - Drug dose omission [Unknown]
  - Device malfunction [Unknown]
